FAERS Safety Report 8113218-1 (Version None)
Quarter: 2012Q1

REPORT INFORMATION
  Report Type: 
  Country: None (occurrence: None)
  Receive Date: 20120203
  Receipt Date: 20120125
  Transmission Date: 20120608
  Serious: Yes (Hospitalization)
  Sender: FDA-Public Use
  Company Number: PHHY2012SE007937

PATIENT
  Sex: Male

DRUGS (1)
  1. TEGRETOL [Suspect]
     Indication: EPILEPSY
     Dosage: 400 MG/DAY
     Route: 048
     Dates: start: 20110903, end: 20111008

REACTIONS (15)
  - C-REACTIVE PROTEIN INCREASED [None]
  - TOXIC SKIN ERUPTION [None]
  - DERMATITIS EXFOLIATIVE [None]
  - SKIN REACTION [None]
  - RASH PUSTULAR [None]
  - PRURITUS [None]
  - TRANSAMINASES INCREASED [None]
  - EOSINOPHILIA [None]
  - HYPOTENSION [None]
  - FOLLICULITIS [None]
  - HEPATITIS TOXIC [None]
  - PORTAL VEIN THROMBOSIS [None]
  - BODY TEMPERATURE INCREASED [None]
  - ATRIAL FIBRILLATION [None]
  - ECZEMA [None]
